FAERS Safety Report 24727538 (Version 1)
Quarter: 2024Q4

REPORT INFORMATION
  Report Type: Spontaneous
  Country: CN (occurrence: CN)
  Receive Date: 20241212
  Receipt Date: 20241212
  Transmission Date: 20250114
  Serious: Yes (Other)
  Sender: PFIZER
  Company Number: CN-PFIZER INC-PV202400160141

PATIENT
  Age: 22 Year
  Sex: Male
  Weight: 49 kg

DRUGS (3)
  1. TYGACIL [Suspect]
     Active Substance: TIGECYCLINE
     Indication: Anti-infective therapy
     Dosage: 50 MG, 2X/DAY
     Route: 041
     Dates: start: 20241024, end: 20241106
  2. TYGACIL [Suspect]
     Active Substance: TIGECYCLINE
     Indication: Pneumonia
  3. PIPERACILLIN AND TAZOBACTAM [Concomitant]
     Active Substance: PIPERACILLIN SODIUM\TAZOBACTAM SODIUM
     Indication: Pneumonia
     Dosage: 4.5 G, 3X/DAY (Q8H)
     Route: 041
     Dates: start: 20241024, end: 20241106

REACTIONS (3)
  - Haematochezia [Unknown]
  - Coagulopathy [Recovering/Resolving]
  - Platelet count decreased [Recovering/Resolving]

NARRATIVE: CASE EVENT DATE: 20241029
